FAERS Safety Report 11964961 (Version 1)
Quarter: 2016Q1

REPORT INFORMATION
  Report Type: Spontaneous
  Country: None (occurrence: None)
  Receive Date: 20160125
  Receipt Date: 20160125
  Transmission Date: 20160526
  Serious: Yes (Other)
  Sender: FDA-Public Use
  Company Number: None

PATIENT
  Age: 18 Month
  Sex: Female
  Weight: 10.8 kg

DRUGS (5)
  1. DERMAPHOR DERMARITE [Suspect]
     Active Substance: MINERAL OIL\PARAFFIN\PETROLATUM
     Indication: PRODUCT USED FOR UNKNOWN INDICATION
     Route: 061
     Dates: start: 20151111, end: 20151112
  2. IBUPROFEN. [Concomitant]
     Active Substance: IBUPROFEN
  3. MORPHINE [Concomitant]
     Active Substance: MORPHINE
  4. ACETAMINOPHEN. [Concomitant]
     Active Substance: ACETAMINOPHEN
  5. OXYCODONE [Concomitant]
     Active Substance: OXYCODONE

REACTIONS (1)
  - Secretion discharge [None]

NARRATIVE: CASE EVENT DATE: 20151111
